FAERS Safety Report 21021273 (Version 1)
Quarter: 2022Q2

REPORT INFORMATION
  Report Type: Spontaneous
  Country: CA (occurrence: CA)
  Receive Date: 20220629
  Receipt Date: 20220629
  Transmission Date: 20220721
  Serious: Yes (Other)
  Sender: FDA-Public Use
  Company Number: CA-SUN PHARMACEUTICAL INDUSTRIES LTD-2022R1-342264

PATIENT

DRUGS (1)
  1. METHADONE [Suspect]
     Active Substance: METHADONE HYDROCHLORIDE
     Indication: Product used for unknown indication
     Route: 065

REACTIONS (6)
  - Foetal exposure during pregnancy [Unknown]
  - Low birth weight baby [Unknown]
  - Drug withdrawal syndrome neonatal [Unknown]
  - Lymphopenia [Unknown]
  - Foetal growth restriction [Unknown]
  - Premature baby [Unknown]
